FAERS Safety Report 10387074 (Version 1)
Quarter: 2014Q3

REPORT INFORMATION
  Report Type: Spontaneous
  Country: TR (occurrence: TR)
  Receive Date: 20140815
  Receipt Date: 20140815
  Transmission Date: 20150326
  Serious: Yes (Hospitalization)
  Sender: FDA-Public Use
  Company Number: TR-NOVOPROD-419173

PATIENT
  Sex: Male
  Weight: 3.25 kg

DRUGS (5)
  1. LEVEMIR [Suspect]
     Active Substance: INSULIN DETEMIR
     Indication: GESTATIONAL DIABETES
     Dosage: 6 U, QD
     Route: 064
     Dates: start: 20140311, end: 20140516
  2. MAGVITAL [Concomitant]
     Indication: MINERAL SUPPLEMENTATION
     Dosage: 1X2
     Route: 064
     Dates: start: 201402, end: 20140516
  3. NOVORAPID [Suspect]
     Active Substance: INSULIN ASPART
     Indication: GESTATIONAL DIABETES
     Dosage: 9 U, QD
     Route: 064
     Dates: start: 20140311, end: 20140516
  4. DECAVIT                            /06014801/ [Concomitant]
     Indication: VITAMIN SUPPLEMENTATION
     Dosage: 1X1
     Route: 064
     Dates: start: 201402
  5. CALCIMED D3 [Concomitant]
     Indication: MINERAL SUPPLEMENTATION
     Dosage: 1X1
     Route: 064
     Dates: start: 201402, end: 20140516

REACTIONS (3)
  - Jaundice neonatal [Recovered/Resolved]
  - Foetal exposure during pregnancy [Recovered/Resolved]
  - Neonatal aspiration [Recovered/Resolved]

NARRATIVE: CASE EVENT DATE: 20140311
